FAERS Safety Report 4530198-6 (Version None)
Quarter: 2004Q4

REPORT INFORMATION
  Report Type: 
  Country: None (occurrence: None)
  Receive Date: 20041217
  Receipt Date: 20041209
  Transmission Date: 20050328
  Serious: Yes (Hospitalization)
  Sender: FDA-Public Use
  Company Number: 200422017GDDC

PATIENT
  Age: 66 Year
  Sex: Female

DRUGS (8)
  1. RIFAMPICIN [Suspect]
     Indication: PNEUMONIA
     Route: 042
     Dates: start: 20041120, end: 20041120
  2. RIFAMPICIN [Suspect]
     Indication: SEPSIS
     Route: 042
     Dates: start: 20041120, end: 20041120
  3. ORAMORPH SR [Concomitant]
     Indication: CANCER PAIN
     Route: 048
  4. DIAZEPAM [Concomitant]
     Indication: ANXIETY
     Route: 048
  5. VENLAFAXINE HCL [Concomitant]
     Indication: DEPRESSION
     Route: 048
  6. PROPRANOLOL [Concomitant]
     Indication: ANXIETY
     Route: 048
  7. IBANDRONIC ACID [Concomitant]
     Indication: CARCINOMA
     Route: 048
  8. METOCHLOPRAMIDE [Concomitant]
     Indication: CONVULSION
     Route: 048

REACTIONS (2)
  - ANAPHYLACTIC REACTION [None]
  - BLOOD PRESSURE INCREASED [None]
